FAERS Safety Report 4322445-0 (Version None)
Quarter: 2004Q1

REPORT INFORMATION
  Report Type: 
  Country: None (occurrence: None)
  Receive Date: 20040319
  Receipt Date: 20040303
  Transmission Date: 20041129
  Serious: Yes (Hospitalization)
  Sender: FDA-Public Use
  Company Number: CEL-2003-00263-ROC

PATIENT
  Age: 59 Year
  Sex: Female
  Weight: 70 kg

DRUGS (7)
  1. IONAMIN [Suspect]
     Indication: INCREASED APPETITE
     Dosage: 15MG QAM
     Dates: start: 20020701, end: 20021001
  2. NEXIUM [Concomitant]
  3. VERAPAMIL [Concomitant]
  4. PREDNISONE [Concomitant]
  5. TYLENOL W/CODEINE NO. 3 (PANADEINE CO) [Concomitant]
  6. SALBUTAMOL (SALBUTAMOL) [Concomitant]
  7. PULMICORT [Concomitant]

REACTIONS (8)
  - ABDOMINAL PAIN [None]
  - COLITIS ISCHAEMIC [None]
  - DIARRHOEA [None]
  - FIBROSIS [None]
  - HAEMATOCHEZIA [None]
  - NAUSEA [None]
  - VOMITING [None]
  - WHITE BLOOD CELL COUNT INCREASED [None]
